FAERS Safety Report 9818385 (Version 1)
Quarter: 2014Q1

REPORT INFORMATION
  Report Type: Spontaneous
  Country: US (occurrence: US)
  Receive Date: 20140115
  Receipt Date: 20140115
  Transmission Date: 20141002
  Serious: No
  Sender: FDA-Public Use
  Company Number: US-PFIZER INC-2014010562

PATIENT
  Sex: Female

DRUGS (1)
  1. PRISTIQ [Suspect]
     Dosage: 25 MG (0.5 DF), UNK
     Dates: start: 20140109

REACTIONS (3)
  - Intentional drug misuse [Unknown]
  - Coordination abnormal [Unknown]
  - Feeling abnormal [Unknown]
